FAERS Safety Report 15306045 (Version 1)
Quarter: 2018Q3

REPORT INFORMATION
  Report Type: Spontaneous
  Country: US (occurrence: US)
  Receive Date: 20180810
  Receipt Date: 20180810
  Transmission Date: 20181010
  Serious: Yes (Life-Threatening, Hospitalization)
  Sender: FDA-Public Use
  Company Number: None

PATIENT
  Age: 61 Year
  Sex: Female
  Weight: 78 kg

DRUGS (15)
  1. REQUIP [Concomitant]
     Active Substance: ROPINIROLE HYDROCHLORIDE
  2. MELOXICAM. [Concomitant]
     Active Substance: MELOXICAM
  3. AMOXICILLIN. [Suspect]
     Active Substance: AMOXICILLIN
  4. OMEPRAZOLE. [Concomitant]
     Active Substance: OMEPRAZOLE
  5. CLONAZEPAM. [Concomitant]
     Active Substance: CLONAZEPAM
  6. METOPROLOL SUCCINATE. [Concomitant]
     Active Substance: METOPROLOL SUCCINATE
  7. PROAIR HFA [Concomitant]
     Active Substance: ALBUTEROL SULFATE
  8. CLASTAZOL [Concomitant]
  9. HYDROCHLOROTHIAZIDE. [Concomitant]
     Active Substance: HYDROCHLOROTHIAZIDE
  10. TIOTROPIUM BROMIDE [Concomitant]
     Active Substance: TIOTROPIUM BROMIDE
  11. ATORVASTATIN [Concomitant]
     Active Substance: ATORVASTATIN
  12. FENOFIBRATE. [Concomitant]
     Active Substance: FENOFIBRATE
  13. FLUTICASONE PROPIONATE. [Concomitant]
     Active Substance: FLUTICASONE PROPIONATE
     Dates: end: 20180515
  14. LISINOPRIL. [Concomitant]
     Active Substance: LISINOPRIL
  15. LEVOTHYROXINE. [Concomitant]
     Active Substance: LEVOTHYROXINE

REACTIONS (15)
  - Ischaemia [None]
  - Dizziness [None]
  - Rash [None]
  - Leukocytosis [None]
  - Hypotension [None]
  - Tracheobronchitis [None]
  - Progressive multifocal leukoencephalopathy [None]
  - Dyspnoea [None]
  - Alcohol abuse [None]
  - Pneumonia [None]
  - Pruritus [None]
  - Unresponsive to stimuli [None]
  - Tachycardia [None]
  - Chronic obstructive pulmonary disease [None]
  - Hyperglycaemia [None]

NARRATIVE: CASE EVENT DATE: 20180515
